FAERS Safety Report 6585632-7 (Version None)
Quarter: 2010Q1

REPORT INFORMATION
  Report Type: 
  Country: None (occurrence: None)
  Receive Date: 20100217
  Receipt Date: 20100208
  Transmission Date: 20100710
  Serious: Yes (Hospitalization)
  Sender: FDA-Public Use
  Company Number: IT-ABBOTT-10P-083-0624805-00

PATIENT
  Sex: Male

DRUGS (4)
  1. FULCRO [Suspect]
     Indication: HYPERLIPIDAEMIA
     Dosage: 200 MG 1 CAP
     Route: 048
  2. TICLOPIDINA [Suspect]
     Indication: ISCHAEMIC STROKE
     Route: 048
  3. PROCAPTAN [Concomitant]
     Indication: DRUG USE FOR UNKNOWN INDICATION
     Route: 048
  4. SELES BETA [Concomitant]
     Indication: DRUG USE FOR UNKNOWN INDICATION
     Route: 048

REACTIONS (1)
  - HEPATITIS [None]
